FAERS Safety Report 7148327-7 (Version None)
Quarter: 2010Q4

REPORT INFORMATION
  Report Type: 
  Country: None (occurrence: None)
  Receive Date: 20101209
  Receipt Date: 20101201
  Transmission Date: 20110411
  Serious: Yes (Other)
  Sender: FDA-Public Use
  Company Number: US-JNJFOC-20100503718

PATIENT
  Sex: Female
  Weight: 18.6 kg

DRUGS (4)
  1. CHILDREN'S MOTRIN [Suspect]
     Route: 048
  2. CHILDREN'S MOTRIN [Suspect]
     Indication: PRODUCT USED FOR UNKNOWN INDICATION
     Dosage: SUSPENSION: 100MG/5ML
     Route: 048
  3. CHILDREN'S TYLENOL PLUS COUGH [Suspect]
     Indication: COUGH
  4. MIRALAX [Concomitant]
     Indication: CONSTIPATION

REACTIONS (3)
  - ERYTHEMA MULTIFORME [None]
  - PRODUCT QUALITY ISSUE [None]
  - UPPER RESPIRATORY TRACT INFECTION [None]
